FAERS Safety Report 5335115-7 (Version None)
Quarter: 2007Q2

REPORT INFORMATION
  Report Type: 
  Country: None (occurrence: None)
  Receive Date: 20070525
  Receipt Date: 20070515
  Transmission Date: 20071010
  Serious: Yes (Death, Hospitalization)
  Sender: FDA-Public Use
  Company Number: FR-ABBOTT-07P-056-0368293-00

PATIENT
  Age: 54 Year
  Sex: Female

DRUGS (7)
  1. DEPAKOTE [Suspect]
     Indication: BIPOLAR I DISORDER
     Route: 048
     Dates: start: 20070308, end: 20070308
  2. DEPAKOTE [Suspect]
     Dates: end: 20070308
  3. AMLODIPINE BESYLATE [Suspect]
     Indication: HYPERTENSION
     Route: 048
     Dates: start: 20070308, end: 20070308
  4. AMLODIPINE BESYLATE [Suspect]
     Dates: end: 20070308
  5. HALOPERIDOL DECANOATE [Concomitant]
     Indication: BIPOLAR I DISORDER
     Route: 030
  6. HALOPERIDOL DECANOATE [Concomitant]
     Route: 048
  7. HALOPERIDOL [Concomitant]
     Indication: BIPOLAR I DISORDER
     Route: 048

REACTIONS (11)
  - ARRHYTHMIA [None]
  - CARDIO-RESPIRATORY ARREST [None]
  - COMA [None]
  - CONDITION AGGRAVATED [None]
  - LIVEDO RETICULARIS [None]
  - MIOSIS [None]
  - MULTI-ORGAN FAILURE [None]
  - MYDRIASIS [None]
  - OVERDOSE [None]
  - PARALYSIS [None]
  - UNRESPONSIVE TO STIMULI [None]
